FAERS Safety Report 5296424-3 (Version None)
Quarter: 2007Q2

REPORT INFORMATION
  Report Type: 
  Country: None (occurrence: None)
  Receive Date: 20070413
  Receipt Date: 20070404
  Transmission Date: 20071010
  Serious: Yes (Hospitalization)
  Sender: FDA-Public Use
  Company Number: JP-ROCHE-491886

PATIENT
  Age: 83 Year
  Sex: Male

DRUGS (1)
  1. TAMIFLU [Suspect]
     Indication: INFLUENZA
     Dosage: FORM REPORTED AS ORAL FORMULATION.
     Route: 048
     Dates: start: 20070402, end: 20070403

REACTIONS (2)
  - EYE INJURY [None]
  - FRACTURE [None]
